FAERS Safety Report 19729525 (Version 2)
Quarter: 2021Q3

REPORT INFORMATION
  Report Type: Report from Study
  Country: CN (occurrence: CN)
  Receive Date: 20210820
  Receipt Date: 20210902
  Transmission Date: 20211014
  Serious: Yes (Hospitalization)
  Sender: FDA-Public Use
  Company Number: CN-PFIZER INC-202101045357

PATIENT
  Age: 61 Year
  Sex: Male
  Weight: 60 kg

DRUGS (7)
  1. ANZATAX (PACLITAXEL) [Suspect]
     Active Substance: PACLITAXEL
     Dosage: BSAX175, EVERY 3 WEEKS
     Route: 041
     Dates: end: 20210715
  2. BO BEI [Suspect]
     Active Substance: CARBOPLATIN
     Dosage: AUC5, EVERY 3 WEEKS
     Route: 041
  3. BLINDED THERAPY [Suspect]
     Active Substance: INVESTIGATIONAL PRODUCT
     Indication: SQUAMOUS CELL CARCINOMA OF LUNG
     Dosage: UNK, EVERY 3 WEEKS
     Route: 041
     Dates: start: 20210513, end: 20210714
  4. ANZATAX (PACLITAXEL) [Suspect]
     Active Substance: PACLITAXEL
     Indication: SQUAMOUS CELL CARCINOMA OF LUNG
     Dosage: BSAX175, EVERY 3 WEEKS
     Route: 041
     Dates: start: 20210514
  5. BO BEI [Suspect]
     Active Substance: CARBOPLATIN
     Indication: SQUAMOUS CELL CARCINOMA OF LUNG
     Dosage: AUC5, EVERY 3 WEEKS
     Route: 041
     Dates: start: 20210514
  6. CODEINE PHOSPHATE AND PLATYCODON TABLETS [Concomitant]
     Dosage: 12 MG, 3X/DAY
     Route: 048
     Dates: start: 20210516
  7. BO BEI [Suspect]
     Active Substance: CARBOPLATIN
     Dosage: AUC5, EVERY 3 WEEKS
     Route: 041
     Dates: end: 20210715

REACTIONS (1)
  - Palpitations [Recovered/Resolved]

NARRATIVE: CASE EVENT DATE: 20210730
